FAERS Safety Report 10026654 (Version 2)
Quarter: 2015Q2

REPORT INFORMATION
  Report Type: Spontaneous
  Country: US (occurrence: US)
  Receive Date: 20140321
  Receipt Date: 20150519
  Transmission Date: 20150821
  Serious: Yes (Death, Other)
  Sender: FDA-Public Use
  Company Number: US-009507513-1403USA008224

PATIENT
  Age: 19 Year
  Sex: Female

DRUGS (1)
  1. NUVARING [Suspect]
     Active Substance: ETHINYL ESTRADIOL\ETONOGESTREL
     Dosage: UNK
     Route: 067

REACTIONS (2)
  - Pulmonary embolism [Fatal]
  - Embolism venous [Fatal]

NARRATIVE: CASE EVENT DATE: 2010
